FAERS Safety Report 9159844 (Version 1)
Quarter: 2013Q1

REPORT INFORMATION
  Report Type: Spontaneous
  Country: US (occurrence: None)
  Receive Date: 20130219
  Receipt Date: 20130219
  Transmission Date: 20140127
  Serious: Yes (Hospitalization)
  Sender: FDA-Public Use
  Company Number: 13AE003

PATIENT
  Age: 21 Year
  Sex: Female

DRUGS (1)
  1. CVS EXTRA STRENGTH PAIN RELIEF [Suspect]
     Indication: ABDOMINAL PAIN UPPER
     Dosage: 2 GELCAPS
     Route: 048
     Dates: start: 20130211

REACTIONS (2)
  - Ovarian cyst [None]
  - Product measured potency issue [None]
